FAERS Safety Report 9504003 (Version 1)
Quarter: 2013Q3

REPORT INFORMATION
  Report Type: Spontaneous
  Country: JP (occurrence: JP)
  Receive Date: 20130906
  Receipt Date: 20130906
  Transmission Date: 20140515
  Serious: Yes (Hospitalization)
  Sender: FDA-Public Use
  Company Number: JP-AMGEN-JPNOT2013062538

PATIENT
  Age: 41 Year
  Sex: Male
  Weight: 78 kg

DRUGS (14)
  1. GRAN [Suspect]
     Indication: NEUTROPHIL COUNT INCREASED
     Dosage: UNK, QD
     Route: 041
     Dates: start: 20130728, end: 20130731
  2. OMEPRAZOLE [Concomitant]
     Dosage: UNK
     Route: 065
  3. ALEVIATIN                          /00017402/ [Concomitant]
     Dosage: UNK
     Route: 065
  4. HEPARIN CALCIUM [Concomitant]
     Dosage: UNK
     Route: 058
  5. CHLOR-TRIMETON [Concomitant]
     Dosage: UNK
     Route: 065
  6. PREDONINE                          /00016203/ [Concomitant]
     Dosage: UNK
     Route: 065
  7. SOLACET F [Concomitant]
     Dosage: UNK
     Route: 041
  8. RIMEFA 3B [Concomitant]
     Dosage: UNK
     Route: 065
  9. NOVO HEPARIN [Concomitant]
     Dosage: UNK
     Route: 065
  10. ALBUMINAR [Concomitant]
     Dosage: UNK
     Route: 065
  11. TENORMIN [Concomitant]
     Dosage: UNK
     Route: 048
  12. ENALAPRIL MALEATE [Concomitant]
     Dosage: UNK
     Route: 048
  13. E KEPPRA [Concomitant]
     Dosage: UNK
     Route: 048
  14. MIYA BM [Concomitant]
     Dosage: UNK
     Route: 048

REACTIONS (1)
  - Acute respiratory distress syndrome [Recovered/Resolved]
